FAERS Safety Report 13496934 (Version 40)
Quarter: 2024Q1

REPORT INFORMATION
  Report Type: Report from Study
  Country: DE (occurrence: DE)
  Receive Date: 20170428
  Receipt Date: 20240117
  Transmission Date: 20240409
  Serious: Yes (Life-Threatening, Hospitalization, Other)
  Sender: FDA-Public Use
  Company Number: DE-BOEHRINGERINGELHEIM-2017-BI-023596

PATIENT
  Age: 65 Year
  Sex: Male
  Weight: 84 kg

DRUGS (17)
  1. NINTEDANIB [Suspect]
     Active Substance: NINTEDANIB
     Indication: Lung adenocarcinoma
     Route: 048
     Dates: start: 20170419, end: 20170425
  2. NINTEDANIB [Suspect]
     Active Substance: NINTEDANIB
     Route: 048
     Dates: end: 20170620
  3. NINTEDANIB [Suspect]
     Active Substance: NINTEDANIB
     Route: 048
     Dates: end: 20171006
  4. NINTEDANIB [Suspect]
     Active Substance: NINTEDANIB
     Route: 048
     Dates: end: 20180103
  5. DOCETAXEL [Suspect]
     Active Substance: DOCETAXEL\DOCETAXEL ANHYDROUS
     Indication: Lung adenocarcinoma
     Dosage: TOTAL DAILY DOSE: 60 MG/M2 BSA (BODY SURFACE AREA)?FORM OF ADMIN.: LIQUID
     Route: 042
     Dates: start: 20170418
  6. SODIUM CHLORIDE [Concomitant]
     Active Substance: SODIUM CHLORIDE
     Indication: Prophylaxis
     Dosage: FORM OF ADMIN.: INTRAVENEOUS INFUSION
     Route: 042
     Dates: start: 20170428
  7. PANTOPRAZOLE SODIUM [Concomitant]
     Active Substance: PANTOPRAZOLE SODIUM
     Indication: Prophylaxis
     Route: 048
     Dates: start: 20170501
  8. ALDACTONE [Concomitant]
     Active Substance: SPIRONOLACTONE
     Indication: Prophylaxis
     Route: 048
     Dates: start: 20161124
  9. PREDNISOLONE [Concomitant]
     Active Substance: PREDNISOLONE
     Indication: Pre-existing disease
     Route: 048
  10. ASPIRIN [Concomitant]
     Active Substance: ASPIRIN
     Indication: Pre-existing disease
     Route: 048
     Dates: start: 20170414
  11. AQUAPHOR [Concomitant]
     Active Substance: PETROLATUM
     Indication: Pre-existing disease
     Dosage: FORM OF ADMIN.: OTHER
     Route: 048
  12. LEVOTHYROXINE NATRIUM [Concomitant]
     Indication: Pre-existing disease
     Route: 048
  13. SYMBICORT [Concomitant]
     Active Substance: BUDESONIDE\FORMOTEROL FUMARATE DIHYDRATE
     Indication: Pre-existing disease
     Route: 055
  14. Breatris Genuair [Concomitant]
     Indication: Pre-existing disease
     Dosage: FORM OF ADMIN.: SPRAY
     Route: 055
  15. Losnesium [Concomitant]
     Indication: Prophylaxis
     Route: 048
  16. Norvasec [Concomitant]
     Indication: Prophylaxis
     Route: 048
     Dates: start: 20170425
  17. HyLo-Vision Gel multi 10 ml Augentropfen [Concomitant]
     Indication: Adverse event
     Route: 031
     Dates: start: 20170509

REACTIONS (18)
  - Febrile neutropenia [Recovered/Resolved]
  - Stomatitis [Recovered/Resolved]
  - Bronchitis [Recovered/Resolved]
  - C-reactive protein increased [Recovered/Resolved]
  - Tumour pain [Recovered/Resolved]
  - Abdominal pain upper [Recovered/Resolved]
  - Weight decreased [Recovered/Resolved]
  - Nausea [Recovered/Resolved]
  - Hyponatraemia [Not Recovered/Not Resolved]
  - Vision blurred [Not Recovered/Not Resolved]
  - Hypokalaemia [Recovered/Resolved]
  - Palmar-plantar erythrodysaesthesia syndrome [Not Recovered/Not Resolved]
  - Diarrhoea [Unknown]
  - Decreased appetite [Recovered/Resolved]
  - White blood cell count decreased [Recovered/Resolved]
  - Constipation [Recovered/Resolved]
  - Neutrophil count decreased [Recovered/Resolved]
  - C-reactive protein increased [Recovered/Resolved]

NARRATIVE: CASE EVENT DATE: 20170425
